FAERS Safety Report 8406956-4 (Version None)
Quarter: 2012Q2

REPORT INFORMATION
  Report Type: 
  Country: None (occurrence: None)
  Receive Date: 20120604
  Receipt Date: 20120524
  Transmission Date: 20120825
  Serious: Yes (Other)
  Sender: FDA-Public Use
  Company Number: US-ASTRAZENECA-2012SE33244

PATIENT
  Age: 65 Year
  Sex: Female

DRUGS (1)
  1. NEXIUM [Suspect]
     Route: 048

REACTIONS (5)
  - VISUAL ACUITY REDUCED [None]
  - FIBROMYALGIA [None]
  - ULCER HAEMORRHAGE [None]
  - BACK DISORDER [None]
  - ASTHMA [None]
